APPROVED DRUG PRODUCT: CODOXY
Active Ingredient: ASPIRIN; OXYCODONE HYDROCHLORIDE; OXYCODONE TEREPHTHALATE
Strength: 325MG;4.5MG;0.38MG
Dosage Form/Route: TABLET;ORAL
Application: A087464 | Product #001
Applicant: HALSEY DRUG CO INC
Approved: Jul 1, 1982 | RLD: No | RS: No | Type: DISCN